FAERS Safety Report 5025619-9 (Version None)
Quarter: 2006Q2

REPORT INFORMATION
  Report Type: 
  Country: None (occurrence: None)
  Receive Date: 20060426
  Receipt Date: 20060306
  Transmission Date: 20061013
  Serious: Yes (Other)
  Sender: FDA-Public Use
  Company Number: 2006025126

PATIENT
  Age: 65 Year
  Sex: Female

DRUGS (4)
  1. LYRICA [Suspect]
     Indication: COMPLEX REGIONAL PAIN SYNDROME
     Dosage: 300 MG (150 MG, 2 IN 1 D)
     Dates: start: 20051117, end: 20051219
  2. NEURONTIN [Suspect]
     Indication: COMPLEX REGIONAL PAIN SYNDROME
     Dosage: ORAL
     Route: 048
     Dates: start: 20050101
  3. LEVOTHYROXINE SODIUM [Concomitant]
  4. ACETAMINOPHEN AND TRAMADOL HCL [Concomitant]

REACTIONS (11)
  - CHEST PAIN [None]
  - CONSTIPATION [None]
  - DEPRESSED MOOD [None]
  - DIZZINESS [None]
  - DRY MOUTH [None]
  - FLATULENCE [None]
  - MYALGIA [None]
  - OEDEMA PERIPHERAL [None]
  - PRURITUS [None]
  - SOMNOLENCE [None]
  - WEIGHT INCREASED [None]
